FAERS Safety Report 20355091 (Version 1)
Quarter: 2022Q1

REPORT INFORMATION
  Report Type: Spontaneous
  Country: US (occurrence: US)
  Receive Date: 20220120
  Receipt Date: 20220120
  Transmission Date: 20220423
  Serious: Yes (Other)
  Sender: FDA-Public Use
  Company Number: US-GLAXOSMITHKLINE- US2022GSK008994

PATIENT
  Sex: Male

DRUGS (4)
  1. ZANTAC [Suspect]
     Active Substance: RANITIDINE HYDROCHLORIDE
     Indication: Abdominal discomfort
     Dosage: UNK UNK, WE
     Route: 065
     Dates: start: 201601, end: 201905
  2. ZANTAC [Suspect]
     Active Substance: RANITIDINE HYDROCHLORIDE
     Indication: Abdominal discomfort
     Dosage: UNK UNK, WE
     Route: 065
     Dates: start: 201601, end: 201905
  3. ZANTAC [Suspect]
     Active Substance: RANITIDINE HYDROCHLORIDE
     Indication: Abdominal discomfort
     Dosage: UNK UNK, WE
     Route: 065
     Dates: start: 201601, end: 201905
  4. RANITIDINE [Suspect]
     Active Substance: RANITIDINE
     Indication: Abdominal discomfort
     Dosage: UNK UNK, WE
     Route: 065
     Dates: start: 201601, end: 201905

REACTIONS (1)
  - Colorectal cancer [Unknown]
